FAERS Safety Report 13004177 (Version 1)
Quarter: 2016Q4

REPORT INFORMATION
  Report Type: Spontaneous
  Country: GB (occurrence: GB)
  Receive Date: 20161206
  Receipt Date: 20161206
  Transmission Date: 20170207
  Serious: Yes (Other)
  Sender: FDA-Public Use
  Company Number: PHHY2016GB116768

PATIENT
  Sex: Male

DRUGS (1)
  1. CITALOPRAM [Suspect]
     Active Substance: CITALOPRAM HYDROBROMIDE
     Indication: PRODUCT USED FOR UNKNOWN INDICATION
     Route: 065

REACTIONS (21)
  - Coordination abnormal [Unknown]
  - Flatulence [Unknown]
  - Musculoskeletal stiffness [Unknown]
  - Product physical issue [Unknown]
  - Irritability [Unknown]
  - Obsessive thoughts [Unknown]
  - Pruritus [Unknown]
  - Hypoacusis [Unknown]
  - Anxiety [Unknown]
  - Disorientation [Unknown]
  - Constipation [Unknown]
  - Paraesthesia [Unknown]
  - Malaise [Unknown]
  - Vision blurred [Unknown]
  - Dizziness [Unknown]
  - Hyperhidrosis [Unknown]
  - Abdominal pain [Unknown]
  - Muscle spasms [Unknown]
  - Blood pressure increased [Unknown]
  - Pain [Unknown]
  - Body temperature increased [Unknown]
